FAERS Safety Report 11646511 (Version 1)
Quarter: 2015Q4

REPORT INFORMATION
  Report Type: Spontaneous
  Country: US (occurrence: US)
  Receive Date: 20151020
  Receipt Date: 20151020
  Transmission Date: 20160304
  Serious: No
  Sender: FDA-Public Use
  Company Number: US-ROCHE-1621007

PATIENT
  Sex: Male
  Weight: 88.53 kg

DRUGS (1)
  1. ESBRIET [Suspect]
     Active Substance: PIRFENIDONE
     Indication: IDIOPATHIC PULMONARY FIBROSIS
     Route: 048
     Dates: start: 20150727

REACTIONS (9)
  - Nausea [Unknown]
  - Flatulence [Unknown]
  - Vertigo [Unknown]
  - Chromaturia [Unknown]
  - Eructation [Unknown]
  - Lethargy [Unknown]
  - Decreased appetite [Unknown]
  - Gait disturbance [Unknown]
  - Fatigue [Unknown]
